FAERS Safety Report 24024234 (Version 4)
Quarter: 2024Q2

REPORT INFORMATION
  Report Type: Report from Study
  Country: CN (occurrence: CN)
  Receive Date: 20240627
  Receipt Date: 20240628
  Transmission Date: 20240716
  Serious: No
  Sender: FDA-Public Use
  Company Number: CN-ROCHE-3065457

PATIENT
  Age: 31 Year
  Sex: Female
  Weight: 75.0 kg

DRUGS (7)
  1. ALECTINIB [Suspect]
     Active Substance: ALECTINIB
     Indication: Lung cancer metastatic
     Route: 048
     Dates: start: 20210909
  2. KANGAI [Concomitant]
     Indication: Lung adenocarcinoma
     Route: 042
     Dates: start: 20211217, end: 202112
  3. KANGAI [Concomitant]
     Route: 050
     Dates: start: 20220614, end: 20220616
  4. MIGLITOL [Concomitant]
     Active Substance: MIGLITOL
     Indication: Type 2 diabetes mellitus
     Route: 048
     Dates: start: 20230413
  5. METFORMIN HYDROCHLORIDE;PIOGLITAZONE HYDROCHLORIDE [Concomitant]
     Indication: Type 2 diabetes mellitus
     Dosage: 1 TABLET
     Route: 048
     Dates: start: 20230413
  6. SPIRONOLACTONE [Concomitant]
     Active Substance: SPIRONOLACTONE
     Indication: Oedema peripheral
     Route: 048
     Dates: start: 20230601, end: 202307
  7. HYDROCHLOROTHIAZIDE [Concomitant]
     Active Substance: HYDROCHLOROTHIAZIDE
     Indication: Oedema peripheral
     Route: 048
     Dates: start: 202307, end: 202308

REACTIONS (1)
  - Anaemia [Not Recovered/Not Resolved]

NARRATIVE: CASE EVENT DATE: 20211228
